FAERS Safety Report 6430681-2 (Version None)
Quarter: 2009Q4

REPORT INFORMATION
  Report Type: 
  Country: None (occurrence: None)
  Receive Date: 20091106
  Receipt Date: 20091104
  Transmission Date: 20100525
  Serious: Yes (Life-Threatening, Disabling)
  Sender: FDA-Public Use
  Company Number: D0062997A

PATIENT
  Sex: Female
  Weight: 68 kg

DRUGS (1)
  1. TYVERB [Suspect]
     Indication: BREAST CANCER
     Route: 048
     Dates: start: 20081001, end: 20090901

REACTIONS (1)
  - ACUTE RESPIRATORY DISTRESS SYNDROME [None]
